FAERS Safety Report 11457244 (Version 1)
Quarter: 2015Q3

REPORT INFORMATION
  Report Type: Spontaneous
  Country: US (occurrence: None)
  Receive Date: 20150903
  Receipt Date: 20150903
  Transmission Date: 20151125
  Serious: Yes (Hospitalization)
  Sender: FDA-Public Use
  Company Number: None

PATIENT
  Age: 44 Year
  Sex: Male
  Weight: 92 kg

DRUGS (4)
  1. FARXIGA [Concomitant]
     Active Substance: DAPAGLIFLOZIN PROPANEDIOL
  2. TRULICITY [Concomitant]
     Active Substance: DULAGLUTIDE
  3. METFORMIN/GLIPIZIDE [Concomitant]
  4. DAPAGLIFLOZIN 10MG BRISTOL-MEYERS [Suspect]
     Active Substance: DAPAGLIFLOZIN
     Indication: TYPE 2 DIABETES MELLITUS
     Route: 048

REACTIONS (11)
  - Asthenia [None]
  - Lethargy [None]
  - Nausea [None]
  - Ketoacidosis [None]
  - Dyspnoea [None]
  - Unresponsive to stimuli [None]
  - Mental status changes [None]
  - Vomiting [None]
  - Abdominal pain [None]
  - Metabolic acidosis [None]
  - Blood glucose increased [None]

NARRATIVE: CASE EVENT DATE: 20150805
